FAERS Safety Report 25735786 (Version 1)
Quarter: 2025Q3

REPORT INFORMATION
  Report Type: Spontaneous
  Country: US (occurrence: None)
  Receive Date: 20250828
  Receipt Date: 20250828
  Transmission Date: 20251021
  Serious: Yes (Hospitalization, Disabling)
  Sender: FDA-CTU
  Company Number: None

PATIENT
  Age: 65 Year
  Sex: Male
  Weight: 83.25 kg

DRUGS (2)
  1. CIPRO [Suspect]
     Active Substance: CIPROFLOXACIN HYDROCHLORIDE
  2. LEVAQUIN [Suspect]
     Active Substance: LEVOFLOXACIN

REACTIONS (2)
  - General symptom [None]
  - Chronic disease [None]

NARRATIVE: CASE EVENT DATE: 19900915
